FAERS Safety Report 8455149-3 (Version None)
Quarter: 2012Q2

REPORT INFORMATION
  Report Type: 
  Country: None (occurrence: None)
  Receive Date: 20120621
  Receipt Date: 20120619
  Transmission Date: 20120825
  Serious: Yes (Disabling, Other)
  Sender: FDA-Public Use
  Company Number: US-PFIZER INC-2012148726

PATIENT
  Sex: Female
  Weight: 109 kg

DRUGS (3)
  1. ZOLOFT [Suspect]
     Indication: EMOTIONAL DISORDER
     Dosage: 100 MG, DAILY
     Route: 048
     Dates: start: 19960101, end: 20080101
  2. LISINOPRIL [Suspect]
     Indication: BLOOD PRESSURE ABNORMAL
     Dosage: 40 MG, DAILY
     Dates: end: 20080101
  3. ZOLOFT [Suspect]
     Indication: PAIN

REACTIONS (6)
  - LIMB DISCOMFORT [None]
  - COUGH [None]
  - ROAD TRAFFIC ACCIDENT [None]
  - PERSONALITY CHANGE [None]
  - FEELING ABNORMAL [None]
  - IMPAIRED WORK ABILITY [None]
